FAERS Safety Report 5661614-4 (Version None)
Quarter: 2008Q1

REPORT INFORMATION
  Report Type: 
  Country: None (occurrence: None)
  Receive Date: 20080312
  Receipt Date: 20080303
  Transmission Date: 20080703
  Serious: Yes (Other)
  Sender: FDA-Public Use
  Company Number: PHHY2008JP00508

PATIENT
  Age: 78 Year
  Sex: Female

DRUGS (6)
  1. ZOMETA [Suspect]
     Indication: MULTIPLE MYELOMA
     Dosage: 4 MG
     Route: 042
     Dates: start: 20071211
  2. STOGAR [Concomitant]
     Indication: PROPHYLAXIS
     Dosage: 20 MG
     Route: 048
     Dates: start: 20051101
  3. ONEALFA [Concomitant]
     Indication: OSTEOPOROSIS
     Dosage: 0.5 MG
     Route: 048
     Dates: start: 20051101
  4. FOSAMAX [Concomitant]
     Indication: OSTEOPOROSIS
     Dosage: 5 MG, BID
     Route: 048
     Dates: end: 20080204
  5. VOLTAREN [Concomitant]
     Indication: BACK PAIN
     Dosage: 37.5 MG
     Route: 048
     Dates: start: 20051101
  6. CONIEL [Concomitant]
     Indication: HYPERTENSION
     Dosage: 4 MG
     Route: 048
     Dates: start: 20051101

REACTIONS (4)
  - ALANINE AMINOTRANSFERASE INCREASED [None]
  - ASPARTATE AMINOTRANSFERASE INCREASED [None]
  - GAMMA-GLUTAMYLTRANSFERASE INCREASED [None]
  - HEPATIC FUNCTION ABNORMAL [None]
